FAERS Safety Report 8987023 (Version 1)
Quarter: 2012Q4

REPORT INFORMATION
  Report Type: 
  Country: DE (occurrence: DE)
  Receive Date: 20121226
  Receipt Date: 20121226
  Transmission Date: 20130627
  Serious: Yes (Other)
  Sender: FDA-Public Use
  Company Number: DE-MYLANLABS-2012S1025574

PATIENT
  Age: 0 Year
  Sex: Female
  Weight: 3.42 kg

DRUGS (4)
  1. DICLOFENAC [Suspect]
     Dosage: dosage and exact exposure times not given
     Route: 064
  2. HYPNOREX [Concomitant]
     Dosage: 800 [mg/d (2x400) ]/ Only ^Hypnorex^ in medical record.
     Route: 064
     Dates: start: 20110504, end: 20120118
  3. VENLAFAXIN [Concomitant]
     Dosage: 300 [mg/d (2x150) ]
     Route: 064
     Dates: start: 20110504, end: 20120118
  4. DOPEGYT [Concomitant]
     Dosage: 750 [mg/d (3x250) ]/ exact begin of therapy not given
     Route: 064

REACTIONS (4)
  - Neonatal respiratory distress syndrome [Recovered/Resolved]
  - Atrial septal defect [Unknown]
  - Right ventricular hypertrophy [Recovering/Resolving]
  - Exposure during pregnancy [Unknown]
